FAERS Safety Report 6124273-2 (Version None)
Quarter: 2009Q1

REPORT INFORMATION
  Report Type: 
  Country: None (occurrence: None)
  Receive Date: 20090319
  Receipt Date: 20090310
  Transmission Date: 20090719
  Serious: Yes (Hospitalization)
  Sender: FDA-Public Use
  Company Number: DE-ASTRAZENECA-2009PK00829

PATIENT
  Age: 80 Year
  Sex: Female
  Weight: 51 kg

DRUGS (8)
  1. SYMBICORT [Suspect]
     Indication: CHRONIC OBSTRUCTIVE PULMONARY DISEASE
     Route: 055
  2. THIAMAZOLE [Concomitant]
     Indication: TOXIC NODULAR GOITRE
     Route: 048
  3. METFORMIN HCL [Concomitant]
     Indication: TYPE 2 DIABETES MELLITUS
     Route: 048
  4. CARVEDILOL [Concomitant]
     Indication: HYPERTENSION
     Route: 048
     Dates: start: 20090101, end: 20090217
  5. TORSEMIDE [Concomitant]
     Indication: CARDIAC FAILURE
     Dosage: 5MG PLUS 2.5 MG DAILY
     Route: 048
     Dates: start: 20090101
  6. DELIX [Concomitant]
     Indication: HYPERTENSION
     Route: 048
     Dates: start: 20090101
  7. ALDACTONE 25 [Concomitant]
     Indication: CARDIAC FAILURE
     Route: 048
     Dates: start: 20090101
  8. PREDNISOLONE [Concomitant]
     Indication: CHRONIC OBSTRUCTIVE PULMONARY DISEASE
     Route: 048

REACTIONS (1)
  - TACHYARRHYTHMIA [None]
